FAERS Safety Report 20112864 (Version 1)
Quarter: 2021Q4

REPORT INFORMATION
  Report Type: Spontaneous
  Country: US (occurrence: None)
  Receive Date: 20211124
  Receipt Date: 20211124
  Transmission Date: 20220303
  Serious: No
  Sender: FDA-Public Use
  Company Number: None

PATIENT
  Age: 37 Year
  Sex: Male
  Weight: 94.5 kg

DRUGS (2)
  1. BAQSIMI [Suspect]
     Active Substance: GLUCAGON
     Indication: Blood glucose decreased
     Dosage: OTHER QUANTITY : 1 INHALATION(S);?FREQUENCY : AS NEEDED;?
     Route: 055
     Dates: start: 20211123, end: 20211123
  2. HUMALOG [Concomitant]
     Active Substance: INSULIN LISPRO

REACTIONS (3)
  - Eye colour change [None]
  - Eye irritation [None]
  - Vitreous floaters [None]

NARRATIVE: CASE EVENT DATE: 20211123
